FAERS Safety Report 4975612-7 (Version None)
Quarter: 2006Q2

REPORT INFORMATION
  Report Type: 
  Country: None (occurrence: None)
  Receive Date: 20060410
  Receipt Date: 20060331
  Transmission Date: 20061013
  Serious: Yes (Hospitalization)
  Sender: FDA-Public Use
  Company Number: GXKR2006DE01876

PATIENT
  Sex: Female

DRUGS (1)
  1. PARACETAMOL (NGX) (PARACETAMOL) TABLET, 500MG [Suspect]
     Dosage: 500 MG, ORAL
     Route: 048
     Dates: start: 20060201

REACTIONS (1)
  - THROMBOCYTOPENIA [None]
